FAERS Safety Report 9433834 (Version 1)
Quarter: 2013Q3

REPORT INFORMATION
  Report Type: Spontaneous
  Country: US (occurrence: US)
  Receive Date: 20130731
  Receipt Date: 20130731
  Transmission Date: 20140515
  Serious: No
  Sender: FDA-Public Use
  Company Number: US-ASTRAZENECA-2013SE47181

PATIENT
  Age: 55 Year
  Sex: Female

DRUGS (8)
  1. SEROQUEL [Suspect]
     Route: 048
  2. AMBIEN [Concomitant]
  3. ALPRAZOLAM [Concomitant]
  4. PREMPRO [Concomitant]
  5. TYLENOL 3 [Concomitant]
  6. LYRICA [Concomitant]
  7. DIAZEPAM [Concomitant]
  8. LEVOTHYROXINE [Concomitant]

REACTIONS (1)
  - Drug screen false positive [Unknown]
